FAERS Safety Report 8617802-8 (Version None)
Quarter: 2012Q3

REPORT INFORMATION
  Report Type: 
  Country: None (occurrence: None)
  Receive Date: 20120824
  Receipt Date: 20120302
  Transmission Date: 20120928
  Serious: No
  Sender: FDA-Public Use
  Company Number: US-ASTRAZENECA-2012SE15000

PATIENT
  Age: 53 Year
  Sex: Female
  Weight: 68 kg

DRUGS (5)
  1. L BUTERAL [Concomitant]
     Indication: ASTHMA
  2. CITALOPRAM HYDROBROMIDE [Concomitant]
     Indication: ASTHMA
     Dosage: CUTS A 20 MG IN HALF, DAILY
  3. SINGULAIR [Concomitant]
     Indication: ASTHMA
  4. SYMBICORT [Suspect]
     Indication: ASTHMA
     Dosage: 160/4.5 MCG, TWO TIMES A DAY
     Route: 055
  5. ZYRTEC [Concomitant]
     Indication: ASTHMA

REACTIONS (5)
  - SLEEP DISORDER [None]
  - INTRAOCULAR PRESSURE INCREASED [None]
  - COUGH [None]
  - HEADACHE [None]
  - BACK PAIN [None]
